FAERS Safety Report 14141370 (Version 1)
Quarter: 2017Q4

REPORT INFORMATION
  Report Type: Spontaneous
  Country: HR (occurrence: HR)
  Receive Date: 20171030
  Receipt Date: 20171030
  Transmission Date: 20180321
  Serious: Yes (Other)
  Sender: FDA-Public Use
  Company Number: HR-PFIZER INC-2017462327

PATIENT
  Age: 51 Year
  Sex: Female
  Weight: 88 kg

DRUGS (6)
  1. EUTHYROX [Concomitant]
     Active Substance: LEVOTHYROXINE SODIUM
     Dosage: 50 UG, UNK
     Route: 048
  2. CARVETREND [Concomitant]
     Active Substance: CARVEDILOL
     Dosage: 12.5 MG, UNK
     Route: 048
  3. PRAXITEN [Concomitant]
     Active Substance: OXAZEPAM
     Dosage: 15 MG, UNK
     Route: 048
  4. DICLO DUO [Concomitant]
     Active Substance: DICLOFENAC SODIUM
     Route: 048
  5. TERTENSIF [Concomitant]
     Active Substance: INDAPAMIDE
     Route: 048
  6. SALAZOPYRIN EN [Suspect]
     Active Substance: SULFASALAZINE
     Dosage: 500 MG, 3X/DAY
     Route: 048
     Dates: start: 20170924

REACTIONS (3)
  - Choking [Recovered/Resolved]
  - Choking sensation [Recovered/Resolved]
  - Erythema [Recovered/Resolved]

NARRATIVE: CASE EVENT DATE: 20171008
